FAERS Safety Report 12156512 (Version 1)
Quarter: 2016Q1

REPORT INFORMATION
  Report Type: Other
  Country: JP (occurrence: JP)
  Receive Date: 20160307
  Receipt Date: 20160307
  Transmission Date: 20160526
  Serious: Yes (Life-Threatening)
  Sender: FDA-Public Use
  Company Number: JP-ENDO PHARMACEUTICALS INC-2016-001639

PATIENT
  Age: 85 Year
  Sex: Female
  Weight: 49 kg

DRUGS (2)
  1. RISPERIDONE ORAL SOLUTION 1MG/ML [Suspect]
     Active Substance: RISPERIDONE
     Indication: INSOMNIA
     Route: 048
  2. MIRTAZAPINE. [Concomitant]
     Active Substance: MIRTAZAPINE
     Indication: INSOMNIA
     Route: 065

REACTIONS (2)
  - Off label use [Recovered/Resolved]
  - Hypotension [Recovered/Resolved]
